FAERS Safety Report 9019517 (Version 3)
Quarter: 2013Q1

REPORT INFORMATION
  Report Type: Spontaneous
  Country: BR (occurrence: BR)
  Receive Date: 20130118
  Receipt Date: 20130130
  Transmission Date: 20140127
  Serious: Yes (Hospitalization, Other)
  Sender: FDA-Public Use
  Company Number: BR-AMGEN-BRASP2012021709

PATIENT
  Age: 51 Year
  Sex: Female
  Weight: 60 kg

DRUGS (6)
  1. ENBREL [Suspect]
     Indication: RHEUMATOID ARTHRITIS
     Dosage: 50 MG, ONCE WEEKLY
     Route: 058
     Dates: start: 201201
  2. ENBREL [Suspect]
     Dosage: 25 MG, 2X/WEEK
     Route: 058
     Dates: start: 201203
  3. ENBREL [Suspect]
     Dosage: UNK
  4. METICORTEN [Concomitant]
     Indication: RHEUMATOID ARTHRITIS
     Dosage: UNKNOWN DOSE, ONCE DAILY
  5. TECNOMET                           /00113801/ [Concomitant]
     Dosage: UNK
  6. PREDNISONE [Concomitant]
     Dosage: UNK

REACTIONS (12)
  - Feeling abnormal [Unknown]
  - Burning sensation [Unknown]
  - Renal cyst [Not Recovered/Not Resolved]
  - Urinary tract infection [Unknown]
  - Headache [Not Recovered/Not Resolved]
  - Pain [Not Recovered/Not Resolved]
  - Secretion discharge [Not Recovered/Not Resolved]
  - Cough [Not Recovered/Not Resolved]
  - Nasal congestion [Not Recovered/Not Resolved]
  - Tinnitus [Unknown]
  - Hearing impaired [Unknown]
  - Injection site pain [Unknown]
